FAERS Safety Report 16155272 (Version 2)
Quarter: 2019Q2

REPORT INFORMATION
  Report Type: Spontaneous
  Country: US (occurrence: US)
  Receive Date: 20190403
  Receipt Date: 20190427
  Transmission Date: 20190711
  Serious: No
  Sender: FDA-Public Use
  Company Number: US-JNJFOC-20190319796

PATIENT
  Sex: Male

DRUGS (2)
  1. TYLENOL EXTRA STRENGTH [Suspect]
     Active Substance: ACETAMINOPHEN
     Indication: BACK PAIN
     Dosage: PRODUCT USE FREQUENCY: ONLY WHEN NEEDED, PRODUCT DOSE OR QUANTITY: 2 TABLETS
     Route: 048
  2. TYLENOL EXTRA STRENGTH [Suspect]
     Active Substance: ACETAMINOPHEN
     Indication: PAIN
     Dosage: PRODUCT USE FREQUENCY: ONLY WHEN NEEDED, PRODUCT DOSE OR QUANTITY: 2 TABLETS
     Route: 048

REACTIONS (2)
  - Pain [Recovered/Resolved]
  - Drug ineffective [Unknown]
